FAERS Safety Report 10745637 (Version 1)
Quarter: 2015Q1

REPORT INFORMATION
  Report Type: Spontaneous
  Country: US (occurrence: None)
  Receive Date: 20150127
  Receipt Date: 20150127
  Transmission Date: 20150721
  Serious: Yes (Hospitalization)
  Sender: FDA-Public Use
  Company Number: None

PATIENT
  Age: 35 Year
  Sex: Female
  Weight: 160 kg

DRUGS (1)
  1. PROTAMINE [Suspect]
     Active Substance: PROTAMINE

REACTIONS (5)
  - Pulmonary oedema [None]
  - Septic shock [None]
  - Klebsiella test positive [None]
  - Subcutaneous emphysema [None]
  - Respiratory failure [None]

NARRATIVE: CASE EVENT DATE: 20141230
